FAERS Safety Report 4512745-3 (Version None)
Quarter: 2004Q4

REPORT INFORMATION
  Report Type: 
  Country: None (occurrence: None)
  Receive Date: 20040928
  Receipt Date: 20040624
  Transmission Date: 20050328
  Serious: No
  Sender: FDA-Public Use
  Company Number: 04P-163-0264693-00

PATIENT
  Age: 61 Year
  Sex: Male
  Weight: 60.782 kg

DRUGS (4)
  1. HUMIRA [Suspect]
     Indication: RHEUMATOID ARTHRITIS
     Dosage: 40 MG 1 IN 2 WK SUBCUTANEOUS
     Route: 058
     Dates: start: 20040401
  2. TRANDOLAPRIL [Concomitant]
  3. PREDNISONE [Concomitant]
  4. FUROSEMIDE [Concomitant]

REACTIONS (2)
  - CHEST DISCOMFORT [None]
  - RESPIRATORY TRACT INFECTION [None]
